FAERS Safety Report 9938522 (Version 2)
Quarter: 2014Q1

REPORT INFORMATION
  Report Type: Report from Study
  Country: US (occurrence: US)
  Receive Date: 20140303
  Receipt Date: 20140303
  Transmission Date: 20141002
  Serious: No
  Sender: FDA-Public Use
  Company Number: US-ABBVIE-12P-163-1027762-00

PATIENT
  Age: 74 Year
  Sex: Male

DRUGS (3)
  1. HUMIRA [Suspect]
     Indication: PSORIASIS
     Route: 058
     Dates: start: 20121101, end: 20121101
  2. HUMIRA [Suspect]
     Route: 058
     Dates: start: 20121108, end: 20121226
  3. UNKNOWN MEDICATION [Concomitant]
     Indication: HYPERTENSION

REACTIONS (4)
  - Alopecia areata [Unknown]
  - Alopecia [Not Recovered/Not Resolved]
  - Lymphocytic infiltration [Unknown]
  - Alopecia [Unknown]
